FAERS Safety Report 17121410 (Version 1)
Quarter: 2019Q4

REPORT INFORMATION
  Report Type: Spontaneous
  Country: US (occurrence: US)
  Receive Date: 20191205
  Receipt Date: 20191205
  Transmission Date: 20200122
  Serious: Yes (Other)
  Sender: FDA-Public Use
  Company Number: None

PATIENT
  Age: 58 Year
  Sex: Female
  Weight: 85.68 kg

DRUGS (11)
  1. HYDROCHLOROTHIAZIDE 25MG [Concomitant]
     Active Substance: HYDROCHLOROTHIAZIDE
     Dates: start: 20141230
  2. JANUVIA [Concomitant]
     Active Substance: SITAGLIPTIN PHOSPHATE
     Dates: start: 20170105
  3. GLIPZIDE 10MG [Concomitant]
     Dates: start: 20160603
  4. XARELTO [Concomitant]
     Active Substance: RIVAROXABAN
     Dates: start: 20170223
  5. AMLODIPINE-BENAZEPRIL 10-40MG [Concomitant]
     Active Substance: AMLODIPINE BESYLATE\BENAZEPRIL HYDROCHLORIDE
     Dates: start: 20180308
  6. LISINOPRIL 10MG [Concomitant]
     Active Substance: LISINOPRIL
     Dates: start: 20150425
  7. ACTOS [Concomitant]
     Active Substance: PIOGLITAZONE HYDROCHLORIDE
     Dates: start: 20180308
  8. FLUOXETINE [Concomitant]
     Active Substance: FLUOXETINE HYDROCHLORIDE
     Dates: start: 20161206
  9. INSULIN DETEMIR [Suspect]
     Active Substance: INSULIN DETEMIR
     Indication: DIABETES MELLITUS
     Route: 058
     Dates: start: 20180521, end: 20181227
  10. ATORVASTATIN 40MG [Concomitant]
     Active Substance: ATORVASTATIN
     Dates: start: 20161206
  11. CLONIDINE 0.1MG PATCH [Concomitant]
     Dates: start: 20180521

REACTIONS (2)
  - Rash [None]
  - Pruritus [None]

NARRATIVE: CASE EVENT DATE: 20181227
